FAERS Safety Report 11674484 (Version 2)
Quarter: 2015Q4

REPORT INFORMATION
  Report Type: Spontaneous
  Country: CH (occurrence: CH)
  Receive Date: 20151028
  Receipt Date: 20151130
  Transmission Date: 20160304
  Serious: Yes (Death, Other)
  Sender: FDA-Public Use
  Company Number: CH-TAKEDA-2015MPI007002

PATIENT

DRUGS (27)
  1. OMEPRAZOLE. [Suspect]
     Active Substance: OMEPRAZOLE
     Indication: PRODUCT USED FOR UNKNOWN INDICATION
     Dosage: 10 MG, QD
     Route: 042
     Dates: start: 20150615, end: 20150716
  2. NOPIL [Suspect]
     Active Substance: SULFAMETHOXAZOLE\TRIMETHOPRIM
     Indication: PRODUCT USED FOR UNKNOWN INDICATION
     Dosage: 180 MG, BID
     Route: 048
     Dates: start: 20150615, end: 20150618
  3. RAPAMUNE [Suspect]
     Active Substance: SIROLIMUS
     Dosage: 1 MG, QD
     Route: 065
     Dates: start: 20150615, end: 20150615
  4. VINCRISTINE [Concomitant]
     Active Substance: VINCRISTINE
     Dosage: UNK
     Route: 065
     Dates: start: 20150417, end: 20150604
  5. SPIRICORT [Concomitant]
     Active Substance: PREDNISOLONE
     Dosage: 15 MG, UNK
     Route: 048
     Dates: start: 20150615, end: 20150615
  6. VELCADE [Suspect]
     Active Substance: BORTEZOMIB
     Dosage: 0.65 MG, QD
     Route: 042
     Dates: start: 20150626, end: 20150626
  7. ROCURONIUM [Concomitant]
     Active Substance: ROCURONIUM BROMIDE
     Dosage: UNK
     Route: 042
     Dates: start: 20150615, end: 20150630
  8. MORPHIN HCL SINTETICA [Concomitant]
     Dosage: UNK
     Route: 042
     Dates: start: 20150615, end: 20150716
  9. AMPHO MORONAL [Concomitant]
     Dosage: UNK
     Route: 048
     Dates: start: 20150707, end: 20150716
  10. VELCADE [Suspect]
     Active Substance: BORTEZOMIB
     Dosage: 0.65 MG, QD
     Route: 042
     Dates: start: 20150604, end: 20150604
  11. RAPAMUNE [Suspect]
     Active Substance: SIROLIMUS
     Indication: PRODUCT USED FOR UNKNOWN INDICATION
     Dosage: 0.6 MG, QD
     Route: 065
     Dates: start: 20150513, end: 20150704
  12. VANCOCIN [Concomitant]
     Active Substance: VANCOMYCIN HYDROCHLORIDE
     Dosage: 220 MG, TID
     Route: 042
     Dates: start: 20150615, end: 20150623
  13. PROPRANOLOL [Concomitant]
     Active Substance: PROPRANOLOL\PROPRANOLOL HYDROCHLORIDE
     Dosage: 2.5 MG, TID
     Route: 048
     Dates: start: 20150617, end: 20150716
  14. DORMICUM                           /00036201/ [Concomitant]
     Active Substance: NITRAZEPAM
     Dosage: 0.25 MG/KG, UNK
     Route: 042
     Dates: start: 20150615, end: 20150616
  15. NERVIFENE [Concomitant]
     Active Substance: CHLORAL HYDRATE
     Dosage: 260 MG, QID
     Route: 054
     Dates: start: 20150615, end: 20150716
  16. SPIRICORT [Concomitant]
     Active Substance: PREDNISOLONE
     Dosage: 2 MG, UNK
     Route: 048
     Dates: start: 20150130, end: 20150704
  17. MABTHERA [Suspect]
     Active Substance: RITUXIMAB
     Indication: PRODUCT USED FOR UNKNOWN INDICATION
     Dosage: UNK
     Route: 041
     Dates: start: 20150625, end: 20150625
  18. RENITEN SUBMITE [Suspect]
     Active Substance: ENALAPRIL MALEATE
     Indication: PRODUCT USED FOR UNKNOWN INDICATION
     Dosage: UNK
     Route: 065
     Dates: start: 20150702, end: 20150707
  19. ACTILYSE [Concomitant]
     Active Substance: ALTEPLASE
     Dosage: 1.2 MG, UNK
     Route: 042
     Dates: start: 20150625, end: 20150625
  20. NIFEDIPINE. [Suspect]
     Active Substance: NIFEDIPINE
     Indication: PRODUCT USED FOR UNKNOWN INDICATION
     Dosage: 15 MG, BID
     Route: 048
     Dates: start: 20150617, end: 20150707
  21. SPORANOX [Suspect]
     Active Substance: ITRACONAZOLE
     Indication: PRODUCT USED FOR UNKNOWN INDICATION
     Dosage: 60 MG, QD
     Route: 048
     Dates: start: 20150222, end: 20150707
  22. SPORANOX [Suspect]
     Active Substance: ITRACONAZOLE
     Dosage: 60 MG, QD
     Route: 048
     Dates: start: 20150709, end: 20150713
  23. MABTHERA [Suspect]
     Active Substance: RITUXIMAB
     Dosage: 190 MG, QD
     Route: 041
     Dates: start: 20150428, end: 20150603
  24. TRACRIUM [Concomitant]
     Active Substance: ATRACURIUM BESYLATE
     Dosage: 13 MG, UNK
     Route: 042
     Dates: start: 20150626, end: 20150626
  25. VELCADE [Suspect]
     Active Substance: BORTEZOMIB
     Indication: PRODUCT USED FOR UNKNOWN INDICATION
     Dosage: 0.65 MG, QD
     Route: 042
     Dates: start: 20150417, end: 20150417
  26. ACICLOVIR [Suspect]
     Active Substance: ACYCLOVIR
     Indication: PRODUCT USED FOR UNKNOWN INDICATION
     Dosage: 160 MG, TID
     Route: 048
     Dates: start: 20150615, end: 20150616
  27. CELLCEPT [Suspect]
     Active Substance: MYCOPHENOLATE MOFETIL\MYCOPHENOLATE MOFETIL HYDROCHLORIDE
     Indication: PRODUCT USED FOR UNKNOWN INDICATION
     Dosage: 220 MG, TID
     Route: 048
     Dates: start: 20150513, end: 20150715

REACTIONS (9)
  - Device related infection [Unknown]
  - Hyperbilirubinaemia [Fatal]
  - Evans syndrome [Unknown]
  - Renal failure [Fatal]
  - Oedema peripheral [Fatal]
  - Septic shock [Unknown]
  - Liver disorder [Fatal]
  - Transaminases increased [Fatal]
  - Oxygen saturation decreased [Fatal]

NARRATIVE: CASE EVENT DATE: 20150411
